FAERS Safety Report 7694376-X (Version None)
Quarter: 2011Q3

REPORT INFORMATION
  Report Type: 
  Country: None (occurrence: None)
  Receive Date: 20110819
  Receipt Date: 20110816
  Transmission Date: 20111222
  Serious: Yes (Other)
  Sender: FDA-Public Use
  Company Number: ES-MERCK-1107ESP00013

PATIENT
  Age: 5 Year
  Sex: Male
  Weight: 26 kg

DRUGS (5)
  1. SINGULAIR [Suspect]
     Indication: ASTHMA
     Route: 048
     Dates: start: 20090101, end: 20090101
  2. SINGULAIR [Suspect]
     Route: 048
     Dates: start: 20100101, end: 20100101
  3. BUDESONIDE [Concomitant]
     Route: 055
  4. SINGULAIR [Suspect]
     Route: 048
     Dates: start: 20110101, end: 20110101
  5. ALBUTEROL [Concomitant]
     Route: 055

REACTIONS (2)
  - ATTENTION DEFICIT/HYPERACTIVITY DISORDER [None]
  - ABNORMAL BEHAVIOUR [None]
